FAERS Safety Report 6436184-3 (Version None)
Quarter: 2009Q4

REPORT INFORMATION
  Report Type: 
  Country: None (occurrence: None)
  Receive Date: 20091111
  Receipt Date: 20091104
  Transmission Date: 20100525
  Serious: Yes (Other)
  Sender: FDA-Public Use
  Company Number: GB-ROCHE-666389

PATIENT
  Age: 10 Year
  Sex: Male

DRUGS (6)
  1. TAMIFLU [Suspect]
     Indication: INFLUENZA
     Dosage: DRUG WITHDRAWN
     Route: 065
     Dates: start: 20091029, end: 20091029
  2. ONDANSETRON [Concomitant]
  3. MERCAPTOPURINE [Concomitant]
  4. METHOTREXATE [Concomitant]
  5. LACTULOSE [Concomitant]
  6. VINCRISTINE [Concomitant]

REACTIONS (4)
  - BRADYCARDIA [None]
  - CONFUSIONAL STATE [None]
  - DELIRIUM [None]
  - SOMNAMBULISM [None]
